FAERS Safety Report 8138868-8 (Version None)
Quarter: 2012Q1

REPORT INFORMATION
  Report Type: 
  Country: None (occurrence: None)
  Receive Date: 20120215
  Receipt Date: 20120203
  Transmission Date: 20120608
  Serious: Yes (Other)
  Sender: FDA-Public Use
  Company Number: US-BAYER-2012-011239

PATIENT
  Age: 57 Year
  Sex: Female
  Weight: 92.971 kg

DRUGS (7)
  1. ASPIRIN [Suspect]
     Indication: ISCHAEMIC HEART DISEASE PROPHYLAXIS
     Dosage: 81 MG, OM, BOTTLE COUNT 60
     Route: 048
     Dates: start: 20120130, end: 20120202
  2. DIAZEPAM [Concomitant]
  3. GLUCOPHAGE [Concomitant]
  4. EFFEXOR XR [Concomitant]
  5. MELOXICAM [Concomitant]
  6. MECLIZINE [Concomitant]
  7. LOTENSIN [Concomitant]

REACTIONS (1)
  - EPISTAXIS [None]
